FAERS Safety Report 4311263-5 (Version None)
Quarter: 2004Q1

REPORT INFORMATION
  Report Type: 
  Country: None (occurrence: None)
  Receive Date: 20040302
  Receipt Date: 20040223
  Transmission Date: 20041129
  Serious: Yes (Other)
  Sender: FDA-Public Use
  Company Number: 230260M03USA

PATIENT
  Age: 31 Year
  Sex: Male
  Weight: 87.5442 kg

DRUGS (4)
  1. REBIF [Suspect]
     Indication: MULTIPLE SCLEROSIS
     Dosage: 8.8 MCG, 3 IN 1 WEEKS, SUBCUTANEOUS
     Route: 058
     Dates: start: 20030201, end: 20030916
  2. BACLOFEN [Concomitant]
  3. TRAZODONE HCL [Concomitant]
  4. ESCITALOPRAM [Concomitant]

REACTIONS (2)
  - INJECTION SITE ABSCESS [None]
  - WOUND SECRETION [None]
